FAERS Safety Report 10586465 (Version 3)
Quarter: 2014Q4

REPORT INFORMATION
  Report Type: Spontaneous
  Country: JP (occurrence: JP)
  Receive Date: 20141117
  Receipt Date: 20141128
  Transmission Date: 20150529
  Serious: Yes (Death, Hospitalization, Other)
  Sender: FDA-Public Use
  Company Number: JP-009507513-1411JPN004961

PATIENT
  Age: 60 Year
  Sex: Female
  Weight: 43 kg

DRUGS (12)
  1. MEROPENEM. [Concomitant]
     Active Substance: MEROPENEM
     Indication: FEBRILE NEUTROPENIA
     Dosage: 0.5 G, TID
     Route: 051
     Dates: start: 20141002, end: 20141010
  2. FILGRASTIM [Concomitant]
     Active Substance: FILGRASTIM
     Indication: LEUKOPENIA
     Dosage: 75 MICROGRAM, QD
     Route: 051
     Dates: start: 20141001, end: 20141011
  3. FLUCONAZOLE. [Concomitant]
     Active Substance: FLUCONAZOLE
     Indication: FEBRILE NEUTROPENIA
     Dosage: TOTAL DAILY DOSE 200 MG, DIVIDED DOSE FREQUENCY UNKNOWN
     Route: 048
     Dates: start: 20140906, end: 20141007
  4. ASPARA K [Concomitant]
     Active Substance: POTASSIUM ASPARTATE
     Indication: HYPOKALAEMIA
     Dosage: 1 G, TID
     Route: 048
     Dates: start: 20141008, end: 20141014
  5. CANCIDAS [Suspect]
     Active Substance: CASPOFUNGIN ACETATE
     Indication: FEBRILE NEUTROPENIA
     Dosage: 50 MG ONCE A DAY
     Route: 041
     Dates: start: 20141009, end: 20141011
  6. SOLU-CORTEF [Concomitant]
     Active Substance: HYDROCORTISONE SODIUM SUCCINATE
     Indication: PYREXIA
     Dosage: 100 MG, QD
     Route: 051
     Dates: start: 20141010, end: 20141010
  7. CANCIDAS [Suspect]
     Active Substance: CASPOFUNGIN ACETATE
     Indication: FUNGAL INFECTION
  8. CANCIDAS [Suspect]
     Active Substance: CASPOFUNGIN ACETATE
     Indication: FEBRILE NEUTROPENIA
     Dosage: 70 MG ONCE A DAY
     Route: 041
     Dates: start: 20141008, end: 20141008
  9. CANCIDAS [Suspect]
     Active Substance: CASPOFUNGIN ACETATE
     Indication: FUNGAL INFECTION
  10. FAMOTIDINE. [Concomitant]
     Active Substance: FAMOTIDINE
     Indication: GASTRITIS PROPHYLAXIS
     Dosage: 20 MG, QD
     Route: 048
     Dates: start: 20141001, end: 20141014
  11. SULFAMETHOXAZOLE AND TRIMETHOPRIM [Concomitant]
     Active Substance: SULFAMETHOXAZOLE\TRIMETHOPRIM
     Indication: PROPHYLAXIS
     Dosage: 1 DF, QD
     Route: 048
     Dates: start: 20141001, end: 20141014
  12. PREDNISOLONE. [Concomitant]
     Active Substance: PREDNISOLONE
     Indication: LYMPHOMA
     Dosage: 25 MG, QD
     Route: 048
     Dates: start: 20141008, end: 20141014

REACTIONS (7)
  - Blood lactate dehydrogenase increased [Not Recovered/Not Resolved]
  - Blood alkaline phosphatase increased [Not Recovered/Not Resolved]
  - Lymphoma [Fatal]
  - Aspartate aminotransferase increased [Not Recovered/Not Resolved]
  - Respiratory failure [Fatal]
  - Pyrexia [Not Recovered/Not Resolved]
  - C-reactive protein increased [Not Recovered/Not Resolved]

NARRATIVE: CASE EVENT DATE: 20141010
